FAERS Safety Report 9864915 (Version 2)
Quarter: 2014Q1

REPORT INFORMATION
  Report Type: Spontaneous
  Country: US (occurrence: US)
  Receive Date: 20140203
  Receipt Date: 20140203
  Transmission Date: 20141002
  Serious: Yes (Other)
  Sender: FDA-Public Use
  Company Number: US-AMGEN-USASP2014002020

PATIENT
  Age: 49 Year
  Sex: Female

DRUGS (2)
  1. ENBREL [Suspect]
     Indication: RHEUMATOID ARTHRITIS
     Dosage: 50 MG, QWK
     Route: 065
     Dates: start: 20080917
  2. METHOTREXATE [Concomitant]
     Dosage: 2.5 MG, 6 TABLETS QWK
     Route: 048

REACTIONS (2)
  - Genital abscess [Not Recovered/Not Resolved]
  - Furuncle [Not Recovered/Not Resolved]
